FAERS Safety Report 17950100 (Version 1)
Quarter: 2020Q2

REPORT INFORMATION
  Report Type: Spontaneous
  Country: ES (occurrence: ES)
  Receive Date: 20200626
  Receipt Date: 20200626
  Transmission Date: 20200714
  Serious: Yes (Hospitalization)
  Sender: FDA-Public Use
  Company Number: NVSC2020ES174218

PATIENT
  Age: 80 Year
  Sex: Female
  Weight: 84 kg

DRUGS (5)
  1. PAROXETINE. [Concomitant]
     Active Substance: PAROXETINE
     Indication: PRODUCT USED FOR UNKNOWN INDICATION
     Dosage: 20 MG, QD
     Route: 048
     Dates: start: 20191029
  2. ZALDIAR [Interacting]
     Active Substance: ACETAMINOPHEN\TRAMADOL HYDROCHLORIDE
     Indication: PRODUCT USED FOR UNKNOWN INDICATION
     Dosage: UNK
     Route: 048
     Dates: start: 20200417, end: 20200420
  3. PREGABALINA KERN PHARMA [Interacting]
     Active Substance: PREGABALIN
     Indication: LUMBAR SPINAL STENOSIS
     Dosage: 75 MG, QD (CAPSULAS DURAS EFG, 100 C?PSULAS)
     Route: 048
     Dates: start: 20200417
  4. FENTAL MATRIX 25 MICROGRAMS/HOUR TRANSDERMAL PATCH [Interacting]
     Active Substance: FENTANYL
     Indication: LUMBAR SPINAL STENOSIS
     Dosage: 25 UG, Q72H (25 MICROGRAMOS/HORA PARCHES TRANSDERMICOS EFG, 5 PARCHES)
     Route: 062
     Dates: start: 20200416, end: 20200421
  5. QUETIAPINE. [Suspect]
     Active Substance: QUETIAPINE
     Indication: PRODUCT USED FOR UNKNOWN INDICATION
     Dosage: 25 MG, QD
     Route: 048
     Dates: start: 20200417, end: 20200421

REACTIONS (2)
  - Fall [Recovered/Resolved]
  - Femur fracture [Recovering/Resolving]

NARRATIVE: CASE EVENT DATE: 20200420
